FAERS Safety Report 16925438 (Version 4)
Quarter: 2019Q4

REPORT INFORMATION
  Report Type: Report from Study
  Country: ZA (occurrence: ZA)
  Receive Date: 20191016
  Receipt Date: 20191115
  Transmission Date: 20200122
  Serious: Yes (Other)
  Sender: FDA-Public Use
  Company Number: ZA-GLAXOSMITHKLINE-UG2019GSK185548

PATIENT
  Age: 6 Month
  Sex: Male
  Weight: 7 kg

DRUGS (11)
  1. LAMIVUDINE. [Suspect]
     Active Substance: LAMIVUDINE
     Dosage: 30 MG, BID
     Dates: start: 20190925, end: 20191031
  2. LOPINAVIR [Suspect]
     Active Substance: LOPINAVIR
     Indication: HIV INFECTION
     Dosage: 80 MG, BID
     Dates: start: 20190826
  3. ABACAVIR SULPHATE [Suspect]
     Active Substance: ABACAVIR
     Indication: HIV INFECTION
     Dosage: 40 MG, BID
     Dates: start: 20190826
  4. BACTRIM [Concomitant]
     Active Substance: SULFAMETHOXAZOLE\TRIMETHOPRIM
     Indication: PROPHYLAXIS
     Dosage: UNK
     Dates: start: 20190820
  5. RITONAVIR. [Suspect]
     Active Substance: RITONAVIR
     Indication: HIV INFECTION
     Dosage: 80 MG, BID
     Dates: start: 20190826
  6. ABACAVIR SULPHATE [Suspect]
     Active Substance: ABACAVIR
     Dosage: 60 MG, BID
     Dates: start: 20190925, end: 20191031
  7. LOPINAVIR [Suspect]
     Active Substance: LOPINAVIR
     Dosage: 120 MG, BID
     Dates: start: 20190925, end: 20191031
  8. RITONAVIR. [Suspect]
     Active Substance: RITONAVIR
     Dosage: 120 MG, BID
     Dates: start: 20190925, end: 20191031
  9. FLUCONAZOLE. [Concomitant]
     Active Substance: FLUCONAZOLE
     Indication: CYTOMEGALOVIRUS INFECTION
     Dosage: UNK
     Dates: start: 20190820
  10. LAMIVUDINE. [Suspect]
     Active Substance: LAMIVUDINE
     Indication: HIV INFECTION
     Dosage: 20 MG, BID
     Dates: start: 20190826
  11. VALGANCICLOVIR. [Concomitant]
     Active Substance: VALGANCICLOVIR
     Indication: CYTOMEGALOVIRUS INFECTION
     Dosage: UNK
     Dates: start: 20190820

REACTIONS (1)
  - Hepatic enzyme increased [Not Recovered/Not Resolved]

NARRATIVE: CASE EVENT DATE: 20191029
